FAERS Safety Report 4640416-1 (Version None)
Quarter: 2005Q2

REPORT INFORMATION
  Report Type: 
  Country: None (occurrence: None)
  Receive Date: 20050420
  Receipt Date: 20050221
  Transmission Date: 20051028
  Serious: Yes (Life-Threatening)
  Sender: FDA-Public Use
  Company Number: JP-SANOFI-SYNTHELABO-A01200501463

PATIENT
  Sex: Female

DRUGS (7)
  1. KAYEXALATE [Suspect]
     Indication: HYPERKALAEMIA
     Dosage: 15 G
     Route: 048
     Dates: start: 20041109, end: 20050104
  2. DIOVAN [Concomitant]
     Indication: DRUG USE FOR UNKNOWN INDICATION
     Dosage: 40 MG
     Route: 048
     Dates: start: 20041109
  3. LASIX [Concomitant]
     Indication: DRUG USE FOR UNKNOWN INDICATION
     Dosage: 20 MG
     Route: 048
     Dates: start: 20040204
  4. WARFARIN SODIUM [Concomitant]
     Indication: DRUG USE FOR UNKNOWN INDICATION
     Dosage: 2 MG
     Route: 048
     Dates: start: 20010817
  5. ZYLORIC [Concomitant]
     Indication: DRUG USE FOR UNKNOWN INDICATION
     Dosage: 100 MG
     Route: 048
     Dates: start: 20040322
  6. FERROMIA [Concomitant]
     Indication: DRUG USE FOR UNKNOWN INDICATION
     Dosage: 50 MG
     Route: 048
     Dates: start: 20041012
  7. AMLODIN [Concomitant]
     Indication: DRUG USE FOR UNKNOWN INDICATION
     Dosage: 10 MG
     Route: 048
     Dates: start: 20041207

REACTIONS (5)
  - BLOOD PRESSURE INCREASED [None]
  - CARDIAC FAILURE CONGESTIVE [None]
  - GENERALISED OEDEMA [None]
  - HYPERNATRAEMIA [None]
  - WEIGHT INCREASED [None]
